FAERS Safety Report 18848848 (Version 2)
Quarter: 2021Q1

REPORT INFORMATION
  Report Type: Spontaneous
  Country: GB (occurrence: GB)
  Receive Date: 20210204
  Receipt Date: 20210224
  Transmission Date: 20210419
  Serious: Yes (Death, Other)
  Sender: FDA-Public Use
  Company Number: GB-SA-2021SA033292

PATIENT
  Age: 62 Year
  Sex: Female

DRUGS (61)
  1. TRASTUZUMAB. [Suspect]
     Active Substance: TRASTUZUMAB
     Dosage: 200 MG
     Route: 042
     Dates: start: 20190716
  2. PERTUZUMAB. [Suspect]
     Active Substance: PERTUZUMAB
     Indication: BREAST CANCER
     Dosage: 840 MILLIGRAM (LOADING DOSE)
     Route: 042
     Dates: start: 20171120, end: 20171120
  3. PERTUZUMAB. [Suspect]
     Active Substance: PERTUZUMAB
     Dosage: 420 MG, Q3W
     Route: 042
     Dates: start: 20171211, end: 20190329
  4. SENNA ALEXANDRINA [Concomitant]
     Active Substance: SENNA LEAF
     Indication: CONSTIPATION
     Dosage: 15 MILLIGRAM
     Route: 048
     Dates: start: 20191001, end: 201910
  5. SODIUM CITRATE. [Concomitant]
     Active Substance: SODIUM CITRATE
     Indication: CONSTIPATION
     Dosage: 450 MG
     Route: 054
     Dates: start: 20200315, end: 20200315
  6. DEXAMETHASONE. [Concomitant]
     Active Substance: DEXAMETHASONE
     Indication: PAIN
     Dosage: 8 MG, Q3W
     Route: 042
     Dates: start: 20190716, end: 20200310
  7. DEXAMETHASONE. [Concomitant]
     Active Substance: DEXAMETHASONE
     Indication: HEMIPARESIS
     Dosage: 4 MG
     Route: 048
     Dates: start: 20190329
  8. DEXAMETHASONE. [Concomitant]
     Active Substance: DEXAMETHASONE
     Dosage: 2 MG
     Route: 048
     Dates: start: 20190805
  9. LORAZEPAM. [Concomitant]
     Active Substance: LORAZEPAM
     Indication: ANXIETY
     Dosage: 1 MG, QD
     Route: 048
     Dates: start: 20190629, end: 20190629
  10. MACROGOL [Concomitant]
     Active Substance: POLYETHYLENE GLYCOLS
     Indication: CONSTIPATION
     Dosage: SACHET
     Route: 048
     Dates: start: 20191003, end: 201910
  11. ORAMORPH SR SUSTAINED RELEASE [Concomitant]
     Active Substance: MORPHINE SULFATE
     Dosage: 10 MG
     Route: 048
     Dates: start: 20190929, end: 20191003
  12. DOCETAXEL. [Suspect]
     Active Substance: DOCETAXEL
     Indication: BREAST CANCER
     Dosage: 200 MG
     Route: 042
     Dates: start: 20171120, end: 20180101
  13. TRASTUZUMAB. [Suspect]
     Active Substance: TRASTUZUMAB
     Dosage: 515 MG, Q4W
     Route: 042
     Dates: start: 20171211, end: 20190329
  14. BISACODYL. [Concomitant]
     Active Substance: BISACODYL
     Indication: CONSTIPATION
     Dosage: 10 MILLIGRAM
     Route: 054
     Dates: start: 20200315, end: 20200315
  15. DALTEPARIN [Concomitant]
     Active Substance: DALTEPARIN
     Dosage: 15000 U
     Route: 058
     Dates: start: 20190628, end: 20190628
  16. DALTEPARIN [Concomitant]
     Active Substance: DALTEPARIN
     Dosage: 5000 IU
     Route: 058
     Dates: start: 20190628, end: 20190628
  17. GRANISETRON [Concomitant]
     Active Substance: GRANISETRON
     Dosage: 1 MG, Q3W
     Route: 042
     Dates: start: 20190716
  18. IRON SUCROSE [Concomitant]
     Active Substance: IRON SUCROSE
     Indication: ANAEMIA
     Dosage: 200 MG, QD
     Route: 042
     Dates: start: 20200313, end: 20200326
  19. METOCLOPRAMIDE. [Concomitant]
     Active Substance: METOCLOPRAMIDE
     Dosage: 10 MG
     Route: 048
     Dates: start: 20190716
  20. MORPHINE SULPHATE [Concomitant]
     Active Substance: MORPHINE SULFATE
     Dosage: 30 MG
     Route: 048
     Dates: start: 20190930, end: 20191002
  21. OMEPRAZOLE. [Concomitant]
     Active Substance: OMEPRAZOLE
     Dosage: 20 MG, QD
     Route: 048
     Dates: start: 20190329
  22. SENNA ALEXANDRINA [Concomitant]
     Active Substance: SENNA LEAF
     Dosage: 1 MILLIGRAM
     Route: 048
     Dates: start: 20190629, end: 20190629
  23. MORPHINE SULPHATE [Concomitant]
     Active Substance: MORPHINE SULFATE
     Dosage: 10 MG
     Dates: start: 20190929, end: 20191003
  24. TRASTUZUMAB. [Suspect]
     Active Substance: TRASTUZUMAB
     Indication: BREAST CANCER
     Dosage: 693 MG LOADING DOSE
     Route: 042
     Dates: start: 20171120, end: 20171120
  25. TRASTUZUMAB EMTANSINE [Suspect]
     Active Substance: ADO-TRASTUZUMAB EMTANSINE
     Dosage: 260 MG
     Route: 042
     Dates: start: 20190814, end: 20190903
  26. DALTEPARIN [Concomitant]
     Active Substance: DALTEPARIN
     Dosage: 18000 IU
     Route: 058
     Dates: start: 20190701
  27. MACROGOL [Concomitant]
     Active Substance: POLYETHYLENE GLYCOLS
     Dosage: SACHET
     Route: 048
     Dates: start: 20190630, end: 20190630
  28. DENOSUMAB [Concomitant]
     Active Substance: DENOSUMAB
     Indication: PROPHYLAXIS
     Dosage: 120 MG, Q4W
     Route: 058
     Dates: start: 20171020
  29. DEXAMETHASONE. [Concomitant]
     Active Substance: DEXAMETHASONE
     Indication: AMNESIA
     Dosage: 2 MG
     Route: 042
     Dates: start: 20190716
  30. DOCETAXEL. [Suspect]
     Active Substance: DOCETAXEL
     Dosage: 180 MG, Q3W
     Route: 042
     Dates: start: 20180122
  31. TRASTUZUMAB EMTANSINE [Suspect]
     Active Substance: ADO-TRASTUZUMAB EMTANSINE
     Dosage: 200 MG, Q3W
     Route: 042
     Dates: start: 20190904
  32. TRASTUZUMAB EMTANSINE [Suspect]
     Active Substance: ADO-TRASTUZUMAB EMTANSINE
     Dosage: 300 MG, Q3W
     Route: 042
     Dates: start: 20190716, end: 20190813
  33. ADCAL D3 [Concomitant]
     Active Substance: CALCIUM CARBONATE\CHOLECALCIFEROL
     Indication: PROPHYLAXIS
     Dosage: 1 DF, QD
     Route: 048
     Dates: start: 20171120
  34. ORAMORPH SR SUSTAINED RELEASE [Concomitant]
     Active Substance: MORPHINE SULFATE
     Dosage: 5 MG
     Route: 048
     Dates: start: 201912, end: 20200401
  35. DEXAMETHASONE. [Concomitant]
     Active Substance: DEXAMETHASONE
     Indication: URINARY INCONTINENCE
     Dosage: 4 MG
     Route: 048
     Dates: start: 20190412
  36. IBUPROFEN. [Concomitant]
     Active Substance: IBUPROFEN
     Dosage: 400 MG
     Route: 048
     Dates: start: 20190930
  37. XGEVA [Suspect]
     Active Substance: DENOSUMAB
     Indication: PROPHYLAXIS
     Dosage: 120 MG, Q4W
     Route: 058
     Dates: start: 20171020
  38. DALTEPARIN [Concomitant]
     Active Substance: DALTEPARIN
     Dosage: 5000 IU
     Route: 058
     Dates: start: 20180626, end: 20180628
  39. DIHYDROCODEINE [Concomitant]
     Active Substance: DIHYDROCODEINE
     Indication: PAIN IN EXTREMITY
     Dosage: 30 MILLIGRAM
     Route: 048
     Dates: start: 20200303, end: 20200331
  40. LEVOFLOXACIN. [Concomitant]
     Active Substance: LEVOFLOXACIN
     Dosage: 500 MG, QD
     Route: 048
     Dates: start: 20191008, end: 20191014
  41. MACROGOL [Concomitant]
     Active Substance: POLYETHYLENE GLYCOLS
     Dosage: SACHET
     Route: 048
     Dates: start: 20200303, end: 20200331
  42. PARACETAMOL [Concomitant]
     Active Substance: ACETAMINOPHEN
     Indication: PAIN IN EXTREMITY
     Dosage: 1 G
     Route: 048
     Dates: start: 20180624, end: 20180704
  43. PREGABALIN. [Concomitant]
     Active Substance: PREGABALIN
     Dosage: 75 MG
     Route: 048
     Dates: start: 20190930
  44. DEXAMETHASONE. [Concomitant]
     Active Substance: DEXAMETHASONE
     Dosage: 8 MG
     Route: 042
     Dates: start: 20200310, end: 20200310
  45. DALTEPARIN [Concomitant]
     Active Substance: DALTEPARIN
     Dosage: 5000 IU
     Route: 058
     Dates: start: 20200303, end: 20200331
  46. DOCUSATE SODIUM. [Concomitant]
     Active Substance: DOCUSATE SODIUM
     Indication: CONSTIPATION
     Dosage: 100 MG
     Route: 048
     Dates: start: 20191003
  47. FENTANYL. [Concomitant]
     Active Substance: FENTANYL
     Dosage: 50 MG
     Route: 062
     Dates: start: 201911, end: 20200504
  48. GENTAMICIN. [Concomitant]
     Active Substance: GENTAMICIN
     Dosage: 120 MG
     Route: 042
     Dates: start: 20200310, end: 20200310
  49. MORPHINE SULPHATE [Concomitant]
     Active Substance: MORPHINE SULFATE
     Dosage: 10 MG, QD
     Route: 048
     Dates: start: 20191003, end: 20191003
  50. MORPHINE SULPHATE [Concomitant]
     Active Substance: MORPHINE SULFATE
     Dosage: 20 MG
     Route: 048
     Dates: start: 20191002, end: 20191003
  51. OXYGEN. [Concomitant]
     Active Substance: OXYGEN
     Dosage: UNK
     Route: 055
     Dates: start: 20190628, end: 20190701
  52. PARACETAMOL [Concomitant]
     Active Substance: ACETAMINOPHEN
     Dosage: 1 G
     Route: 048
     Dates: start: 20190930
  53. TRANEXAMIC ACID. [Concomitant]
     Active Substance: TRANEXAMIC ACID
     Dosage: 1 GRAM
     Route: 042
     Dates: start: 20200310, end: 20200310
  54. DALTEPARIN [Concomitant]
     Active Substance: DALTEPARIN
     Indication: PROPHYLAXIS
     Dosage: 5000 IU
     Route: 058
     Dates: start: 20180623, end: 20180624
  55. DALTEPARIN [Concomitant]
     Active Substance: DALTEPARIN
     Dosage: 15000 IU
     Route: 058
     Dates: start: 20190802
  56. GLYCERINE [Concomitant]
     Active Substance: GLYCERIN
     Indication: CONSTIPATION
     Dosage: 4 G
     Route: 054
     Dates: start: 20200315, end: 20200315
  57. LEVOBUPIVACAINE [Concomitant]
     Active Substance: LEVOBUPIVACAINE
     Indication: PAIN IN EXTREMITY
     Dosage: 5 ML, QH
     Route: 058
     Dates: start: 20200304, end: 20200331
  58. TAZOCIN [Concomitant]
     Active Substance: PIPERACILLIN SODIUM\TAZOBACTAM SODIUM
     Dosage: 4.5 MG
     Route: 042
     Dates: start: 20191005, end: 20191007
  59. DEXAMETHASONE. [Concomitant]
     Active Substance: DEXAMETHASONE
     Dosage: 8 MG, QD
     Route: 042
     Dates: start: 20200329
  60. OXYCODONE [Concomitant]
     Active Substance: OXYCODONE
     Dosage: 2.5 MG
     Route: 048
     Dates: start: 20191003
  61. OXYCODONE [Concomitant]
     Active Substance: OXYCODONE
     Dosage: 10 MG
     Route: 048
     Dates: start: 20191003

REACTIONS (3)
  - Fatigue [Not Recovered/Not Resolved]
  - Pneumonia [Fatal]
  - Off label use [Unknown]

NARRATIVE: CASE EVENT DATE: 20171120
